FAERS Safety Report 9043492 (Version 1)
Quarter: 2013Q1

REPORT INFORMATION
  Report Type: Report from Study
  Country: US (occurrence: US)
  Receive Date: 20130129
  Receipt Date: 20130129
  Transmission Date: 20140127
  Serious: No
  Sender: FDA-Public Use
  Company Number: US-ABBOTT-12P-163-0911429-00

PATIENT
  Age: 45 Year
  Sex: Female

DRUGS (13)
  1. HUMIRA 40 MG/0.8 ML PEN [Suspect]
     Indication: RHEUMATOID ARTHRITIS
     Dates: start: 20111121
  2. NORTRIPTYLINE [Concomitant]
     Indication: MIGRAINE
     Dosage: DAILY
     Route: 048
  3. CALCIUM [Concomitant]
     Indication: OSTEOPENIA
     Route: 048
  4. VITAMIN D [Concomitant]
     Indication: SUPPLEMENTATION THERAPY
     Dosage: DAILY
     Route: 048
  5. IRON [Concomitant]
     Indication: ANAEMIA PROPHYLAXIS
     Route: 048
  6. VITAMIN B-12 [Concomitant]
     Indication: RHEUMATOID ARTHRITIS
     Dosage: DAILY
     Route: 048
  7. FISH OIL [Concomitant]
     Indication: RHEUMATOID ARTHRITIS
     Dosage: DAILY
     Route: 048
  8. CRYSELLE (BIRTH CONTROL PILL) [Concomitant]
     Indication: UTERINE HAEMORRHAGE
     Dates: start: 2008
  9. CRYSELLE (BIRTH CONTROL PILL) [Concomitant]
     Indication: UTERINE SPASM
  10. FOLIC ACID [Concomitant]
     Indication: RHEUMATOID ARTHRITIS
     Dosage: DAILY
     Route: 048
     Dates: start: 20100423
  11. METHOTREXATE [Concomitant]
     Indication: RHEUMATOID ARTHRITIS
     Dosage: 6 TABLETS WEEKLY
     Route: 048
     Dates: start: 20100423
  12. PREDNISONE [Concomitant]
     Indication: RHEUMATOID ARTHRITIS
     Dosage: DAILY
     Route: 048
     Dates: start: 20110316
  13. HYDROXYCHLOR [Concomitant]
     Indication: RHEUMATOID ARTHRITIS
     Dosage: DAILY
     Route: 048
     Dates: start: 201106

REACTIONS (2)
  - Arthralgia [Not Recovered/Not Resolved]
  - Menorrhagia [Not Recovered/Not Resolved]
